FAERS Safety Report 9949456 (Version 1)
Quarter: 2014Q1

REPORT INFORMATION
  Report Type: Spontaneous
  Country: US (occurrence: US)
  Receive Date: 20140304
  Receipt Date: 20140304
  Transmission Date: 20141002
  Serious: No
  Sender: FDA-Public Use
  Company Number: US-PFIZER INC-2014058033

PATIENT
  Age: 55 Year
  Sex: Female

DRUGS (2)
  1. AROMASIN [Suspect]
     Indication: CONNECTIVE TISSUE NEOPLASM
     Dosage: 25 MG, UNK
     Dates: start: 20130926
  2. AROMASIN [Suspect]
     Indication: SOFT TISSUE NEOPLASM

REACTIONS (2)
  - Fatigue [Unknown]
  - Blister [Unknown]
